FAERS Safety Report 23947440 (Version 1)
Quarter: 2024Q2

REPORT INFORMATION
  Report Type: Spontaneous
  Country: US (occurrence: US)
  Receive Date: 20240606
  Receipt Date: 20240606
  Transmission Date: 20240716
  Serious: No
  Sender: FDA-Public Use
  Company Number: US-MYLANLABS-2024M1050038

PATIENT
  Sex: Male
  Weight: 38.5 kg

DRUGS (1)
  1. EPIPEN JR [Suspect]
     Active Substance: EPINEPHRINE
     Indication: Anaphylaxis treatment
     Dosage: UNK
     Route: 030

REACTIONS (1)
  - Circumstance or information capable of leading to medication error [Unknown]
